FAERS Safety Report 5038979-X (Version None)
Quarter: 2006Q2

REPORT INFORMATION
  Report Type: 
  Country: None (occurrence: None)
  Receive Date: 20060628
  Receipt Date: 20060628
  Transmission Date: 20061013
  Serious: Yes (Life-Threatening)
  Sender: FDA-Public Use
  Company Number: None

PATIENT
  Age: 40 Year
  Sex: Female
  Weight: 83.9154 kg

DRUGS (1)
  1. ORTHO EVRA [Suspect]
     Indication: CONTRACEPTION
     Dosage: 1 PATCH EVERY WEEK TOP
     Route: 061
     Dates: start: 20050111, end: 20060326

REACTIONS (2)
  - ABDOMINAL PAIN [None]
  - PULMONARY EMBOLISM [None]
